FAERS Safety Report 4427331-3 (Version None)
Quarter: 2004Q3

REPORT INFORMATION
  Report Type: 
  Country: None (occurrence: None)
  Receive Date: 20040811
  Receipt Date: 20040727
  Transmission Date: 20050211
  Serious: Yes (Other)
  Sender: FDA-Public Use
  Company Number: USA040773879

PATIENT
  Age: 45 Year
  Sex: Male
  Weight: 105 kg

DRUGS (7)
  1. HUMALOG [Suspect]
     Indication: DIABETES MELLITUS
     Dates: start: 19920101
  2. ZYPREXA [Suspect]
     Indication: SCHIZOPHRENIA
     Dosage: 22.5 MG DAY
     Dates: start: 19920101
  3. HUMULIN N [Suspect]
     Dates: start: 19920101
  4. GEMFIBROZIL [Concomitant]
  5. NIACIN [Concomitant]
  6. NEXIUM [Concomitant]
  7. LIPITOR [Concomitant]

REACTIONS (14)
  - ABNORMAL DREAMS [None]
  - BLOOD CHOLESTEROL INCREASED [None]
  - BLOOD GLUCOSE INCREASED [None]
  - BLOOD TRIGLYCERIDES INCREASED [None]
  - FATIGUE [None]
  - FEELING ABNORMAL [None]
  - HALLUCINATION, AUDITORY [None]
  - HYPOAESTHESIA [None]
  - MALAISE [None]
  - MEDICATION ERROR [None]
  - PAIN IN EXTREMITY [None]
  - PANCREAS INFECTION [None]
  - PANCREATITIS [None]
  - WEIGHT DECREASED [None]
